FAERS Safety Report 6808970-9 (Version None)
Quarter: 2010Q2

REPORT INFORMATION
  Report Type: 
  Country: None (occurrence: None)
  Receive Date: 20100630
  Receipt Date: 20091124
  Transmission Date: 20101027
  Serious: No
  Sender: FDA-Public Use
  Company Number: US-PFIZER INC-2009277594

PATIENT
  Sex: Male

DRUGS (3)
  1. ZYVOX [Suspect]
  2. DOXYCYCLINE HYCLATE [Suspect]
  3. BACTRIM [Concomitant]
     Indication: STAPHYLOCOCCAL INFECTION

REACTIONS (3)
  - DRUG INEFFECTIVE [None]
  - EYE DISORDER [None]
  - MALAISE [None]
